FAERS Safety Report 13549001 (Version 1)
Quarter: 2017Q2

REPORT INFORMATION
  Report Type: Spontaneous
  Country: US (occurrence: US)
  Receive Date: 20170515
  Receipt Date: 20170515
  Transmission Date: 20170830
  Serious: Yes (Other)
  Sender: FDA-Public Use
  Company Number: None

PATIENT
  Age: 36 Year
  Sex: Female

DRUGS (1)
  1. AMPYRA [Suspect]
     Active Substance: DALFAMPRIDINE
     Indication: MULTIPLE SCLEROSIS
     Route: 048
     Dates: start: 201005, end: 201502

REACTIONS (5)
  - Drug ineffective [None]
  - Walking aid user [None]
  - Wheelchair user [None]
  - Gait disturbance [None]
  - Condition aggravated [None]

NARRATIVE: CASE EVENT DATE: 20150401
